FAERS Safety Report 25053070 (Version 3)
Quarter: 2025Q1

REPORT INFORMATION
  Report Type: Spontaneous
  Country: US (occurrence: US)
  Receive Date: 20250307
  Receipt Date: 20250324
  Transmission Date: 20250409
  Serious: Yes (Other)
  Sender: SANOFI AVENTIS
  Company Number: US-SA-2025SA063670

PATIENT
  Age: 69 Year
  Sex: Female
  Weight: 74.8 kg

DRUGS (3)
  1. DUPIXENT [Suspect]
     Active Substance: DUPILUMAB
     Indication: Dermatitis atopic
     Dosage: 300 MG, QOW
     Route: 058
  2. ONDANSETRON [Concomitant]
     Active Substance: ONDANSETRON
  3. LETROZOLE [Concomitant]
     Active Substance: LETROZOLE

REACTIONS (2)
  - Neoplasm malignant [Unknown]
  - Illness [Unknown]
